FAERS Safety Report 21899061 (Version 1)
Quarter: 2023Q1

REPORT INFORMATION
  Report Type: Spontaneous
  Country: US (occurrence: US)
  Receive Date: 20230123
  Receipt Date: 20230123
  Transmission Date: 20230417
  Serious: No
  Sender: FDA-Public Use
  Company Number: US-GLAXOSMITHKLINE-USCH2023AMR003153

PATIENT
  Age: 63 Year
  Sex: Female
  Weight: 71.67 kg

DRUGS (5)
  1. LORATADINE [Suspect]
     Active Substance: LORATADINE
     Indication: Rash
     Dosage: 10 MG
     Dates: start: 202301
  2. LORATADINE [Suspect]
     Active Substance: LORATADINE
     Indication: Tenderness
  3. TYLENOL [Suspect]
     Active Substance: ACETAMINOPHEN
     Indication: Rash
     Dosage: UNK
     Dates: start: 202301
  4. TYLENOL [Suspect]
     Active Substance: ACETAMINOPHEN
     Indication: Tenderness
  5. TYLENOL [Suspect]
     Active Substance: ACETAMINOPHEN
     Indication: Pruritus

REACTIONS (4)
  - Rash [Not Recovered/Not Resolved]
  - Tenderness [Not Recovered/Not Resolved]
  - Condition aggravated [Not Recovered/Not Resolved]
  - Drug ineffective [Unknown]

NARRATIVE: CASE EVENT DATE: 20230101
